FAERS Safety Report 23414042 (Version 3)
Quarter: 2024Q2

REPORT INFORMATION
  Report Type: Report from Study
  Country: US (occurrence: US)
  Receive Date: 20240117
  Receipt Date: 20240429
  Transmission Date: 20240716
  Serious: No
  Sender: FDA-Public Use
  Company Number: US-AstraZeneca-CH-00543590A

PATIENT
  Sex: Male

DRUGS (1)
  1. ULTOMIRIS [Suspect]
     Active Substance: RAVULIZUMAB-CWVZ
     Indication: Myasthenia gravis
     Dosage: UNK, EVERY 8 WEEKS
     Route: 065
     Dates: start: 20230831

REACTIONS (7)
  - Hypersomnia [Unknown]
  - Facial paresis [Unknown]
  - Hypoaesthesia eye [Unknown]
  - Therapeutic response shortened [Unknown]
  - Myalgia [Recovering/Resolving]
  - Asthenia [Not Recovered/Not Resolved]
  - Fatigue [Unknown]
